FAERS Safety Report 21957297 (Version 1)
Quarter: 2023Q1

REPORT INFORMATION
  Report Type: Spontaneous
  Country: US (occurrence: None)
  Receive Date: 20230203
  Receipt Date: 20230203
  Transmission Date: 20230418
  Serious: Yes (Life-Threatening, Hospitalization)
  Sender: FDA-Public Use
  Company Number: None

PATIENT
  Age: 28 Year
  Sex: Female

DRUGS (2)
  1. INFED [Suspect]
     Active Substance: IRON DEXTRAN
     Indication: Iron deficiency anaemia
     Route: 042
     Dates: start: 20230203, end: 20230203
  2. INFED [Suspect]
     Active Substance: IRON DEXTRAN
     Indication: Anaemia of pregnancy

REACTIONS (2)
  - Anaphylactic reaction [None]
  - Maternal exposure during pregnancy [None]

NARRATIVE: CASE EVENT DATE: 20230203
